FAERS Safety Report 16163301 (Version 1)
Quarter: 2019Q2

REPORT INFORMATION
  Report Type: Spontaneous
  Country: US (occurrence: US)
  Receive Date: 20190304
  Receipt Date: 20190304
  Transmission Date: 20190711
  Serious: Yes (Hospitalization)
  Sender: FDA-Public Use
  Company Number: None

PATIENT
  Age: 8 Year
  Sex: Male

DRUGS (4)
  1. SPRYCEL [Suspect]
     Active Substance: DASATINIB
     Indication: LEUKAEMIA
     Route: 048
     Dates: start: 20180907, end: 20190302
  2. GABAPENTIN 250MG/5ML [Concomitant]
  3. GRANISETON 1 MG - 11/23/2018 [Concomitant]
  4. HYDROXYZINE 10MG/5ML [Concomitant]

REACTIONS (2)
  - Full blood count decreased [None]
  - Asthenia [None]

NARRATIVE: CASE EVENT DATE: 20190302
